FAERS Safety Report 20938821 (Version 1)
Quarter: 2022Q2

REPORT INFORMATION
  Report Type: Spontaneous
  Country: US (occurrence: None)
  Receive Date: 20220608
  Receipt Date: 20220608
  Transmission Date: 20220721
  Serious: Yes (Hospitalization)
  Sender: FDA-Public Use
  Company Number: None

PATIENT
  Age: 36 Year
  Sex: Male

DRUGS (1)
  1. SODIUM CHLORIDE [Suspect]
     Active Substance: SODIUM CHLORIDE
     Indication: Cystic fibrosis
     Dosage: 1 VIAL ONCE DAILY INHALED?
     Route: 055
     Dates: start: 202201

REACTIONS (3)
  - Nasal congestion [None]
  - Chest discomfort [None]
  - Infection [None]

NARRATIVE: CASE EVENT DATE: 20220527
